FAERS Safety Report 10923097 (Version 36)
Quarter: 2020Q3

REPORT INFORMATION
  Report Type: Report from Study
  Country: CA (occurrence: CA)
  Receive Date: 20150317
  Receipt Date: 20200923
  Transmission Date: 20201102
  Serious: Yes (Death, Hospitalization, Other)
  Sender: FDA-Public Use
  Company Number: PHHY2010CA15776

PATIENT
  Age: 55 Year
  Sex: Male
  Weight: 100 kg

DRUGS (13)
  1. SANDOSTATIN LAR DEPOT [Suspect]
     Active Substance: OCTREOTIDE ACETATE
     Dosage: 40 MG, QMO,
     Route: 030
     Dates: start: 20130305
  2. CRESTOR [Concomitant]
     Active Substance: ROSUVASTATIN CALCIUM
     Indication: PRODUCT USED FOR UNKNOWN INDICATION
     Dosage: UNK UNK, QD
     Route: 065
  3. SANDOSTATIN LAR DEPOT [Suspect]
     Active Substance: OCTREOTIDE ACETATE
     Dosage: 30 MG, QMO, EVERY 4 WEEKS
     Route: 030
     Dates: start: 20141216
  4. ALTACE [Concomitant]
     Active Substance: RAMIPRIL
     Indication: PRODUCT USED FOR UNKNOWN INDICATION
     Dosage: UNK UNK, QD
     Route: 065
  5. SANDOSTATIN LAR DEPOT [Suspect]
     Active Substance: OCTREOTIDE ACETATE
     Dosage: 30 MG, QMO (EVERY 4 WEEKS)
     Route: 030
     Dates: start: 20190213
  6. AMLODIPINE [Suspect]
     Active Substance: AMLODIPINE BESYLATE
     Indication: BLOOD PRESSURE ABNORMAL
     Dosage: 10 MG, QD
     Route: 065
     Dates: start: 2016
  7. SANDOSTATIN LAR DEPOT [Suspect]
     Active Substance: OCTREOTIDE ACETATE
     Indication: CARCINOID TUMOUR
     Dosage: 30 MG, QMO (EVERY 4 WEEKS)
     Route: 030
     Dates: start: 20060710
  8. MORPHINE [Suspect]
     Active Substance: MORPHINE
     Indication: PRODUCT USED FOR UNKNOWN INDICATION
     Dosage: UNK
     Route: 065
  9. LANTUS [Concomitant]
     Active Substance: INSULIN GLARGINE
     Indication: PRODUCT USED FOR UNKNOWN INDICATION
     Dosage: UNK UNK, QD
     Route: 065
  10. KETOROLAC [Suspect]
     Active Substance: KETOROLAC TROMETHAMINE
     Indication: PRODUCT USED FOR UNKNOWN INDICATION
     Dosage: UNK
     Route: 065
  11. ASA [Concomitant]
     Active Substance: ASPIRIN
     Indication: PROPHYLAXIS
     Dosage: UNK UNK, QD
     Route: 048
  12. AMLODIPINE [Suspect]
     Active Substance: AMLODIPINE BESYLATE
     Dosage: 5 MG
     Route: 065
     Dates: end: 2016
  13. HUMULIN R [Concomitant]
     Active Substance: INSULIN HUMAN
     Indication: PRODUCT USED FOR UNKNOWN INDICATION
     Dosage: UNK UNK, BID
     Route: 065

REACTIONS (36)
  - Ocular icterus [Unknown]
  - Vomiting [Unknown]
  - Hepatic neoplasm [Unknown]
  - Blood pressure diastolic decreased [Recovering/Resolving]
  - Post procedural complication [Unknown]
  - Drug hypersensitivity [Unknown]
  - Tremor [Unknown]
  - Biliary obstruction [Unknown]
  - Pain [Recovered/Resolved]
  - Needle issue [Unknown]
  - Jaundice [Unknown]
  - Device occlusion [Unknown]
  - Abdominal pain [Unknown]
  - Weight decreased [Unknown]
  - Pain [Fatal]
  - Aspiration [Fatal]
  - Diabetes mellitus [Unknown]
  - Blood pressure fluctuation [Recovering/Resolving]
  - Orthostatic hypotension [Unknown]
  - Incorrect dose administered [Unknown]
  - Blood pressure increased [Unknown]
  - Blood pressure systolic increased [Recovering/Resolving]
  - Diarrhoea [Unknown]
  - General physical health deterioration [Fatal]
  - Asthenia [Fatal]
  - Chills [Unknown]
  - Bronchitis [Recovering/Resolving]
  - Blood glucose decreased [Unknown]
  - Yellow skin [Recovering/Resolving]
  - Eating disorder [Unknown]
  - Body temperature decreased [Unknown]
  - Decreased appetite [Unknown]
  - Nausea [Unknown]
  - Discomfort [Recovering/Resolving]
  - Malaise [Unknown]
  - Heart rate decreased [Unknown]

NARRATIVE: CASE EVENT DATE: 20100303
